FAERS Safety Report 19849806 (Version 1)
Quarter: 2021Q3

REPORT INFORMATION
  Report Type: Spontaneous
  Country: US (occurrence: US)
  Receive Date: 20210917
  Receipt Date: 20210917
  Transmission Date: 20211014
  Serious: Yes (Hospitalization, Other)
  Sender: FDA-Public Use
  Company Number: US-PURDUE-USA-2020-0283670

PATIENT
  Sex: Male

DRUGS (5)
  1. OPANA [Suspect]
     Active Substance: OXYMORPHONE HYDROCHLORIDE
     Indication: SURGERY
     Dosage: UNKNOWN
     Route: 065
  2. SEROQUEL [Concomitant]
     Active Substance: QUETIAPINE FUMARATE
     Indication: PRODUCT USED FOR UNKNOWN INDICATION
     Dosage: UNKNOWN
     Route: 065
  3. MORPHINE SULFATE (SIMILAR TO NDA 19?516) [Suspect]
     Active Substance: MORPHINE SULFATE
     Indication: SURGERY
     Dosage: UNKNOWN
     Route: 065
  4. HEROIN [Suspect]
     Active Substance: DIAMORPHINE
     Indication: SURGERY
     Dosage: UNKNOWN
     Route: 065
  5. DILAUDID [Suspect]
     Active Substance: HYDROMORPHONE HYDROCHLORIDE
     Indication: SURGERY
     Dosage: UNKNOWN
     Route: 065

REACTIONS (13)
  - Stress [Unknown]
  - Bipolar disorder [Unknown]
  - Schizoaffective disorder [Unknown]
  - Amnesia [Unknown]
  - Drug withdrawal syndrome [Unknown]
  - Personality disorder [Unknown]
  - Drug dependence [Unknown]
  - Anxiety disorder [Unknown]
  - Insomnia [Unknown]
  - Suicide attempt [Unknown]
  - Post-traumatic stress disorder [Unknown]
  - Emotional distress [Unknown]
  - Overdose [Unknown]
